FAERS Safety Report 7526028-0 (Version None)
Quarter: 2011Q2

REPORT INFORMATION
  Report Type: 
  Country: None (occurrence: None)
  Receive Date: 20110526
  Receipt Date: 20110512
  Transmission Date: 20111010
  Serious: Yes (Other)
  Sender: FDA-Public Use
  Company Number: 2011AP000981

PATIENT
  Sex: Male

DRUGS (1)
  1. CITALOPRAM HYDROBROMIDE [Suspect]
     Dosage: 20 MG;TRPL
     Route: 064

REACTIONS (10)
  - ABNORMAL PALMAR/PLANTAR CREASES [None]
  - CLEFT PALATE [None]
  - PILONIDAL CYST CONGENITAL [None]
  - CONGENITAL CENTRAL NERVOUS SYSTEM ANOMALY [None]
  - OPTIC NERVE HYPOPLASIA [None]
  - ARACHNOID CYST [None]
  - HYPOTONIA [None]
  - MULTIPLE CONGENITAL ABNORMALITIES [None]
  - MATERNAL DRUGS AFFECTING FOETUS [None]
  - HYPERTELORISM OF ORBIT [None]
